FAERS Safety Report 9848485 (Version 1)
Quarter: 2014Q1

REPORT INFORMATION
  Report Type: Spontaneous
  Country: US (occurrence: None)
  Receive Date: 20140122
  Receipt Date: 20140122
  Transmission Date: 20141002
  Serious: Yes (Death)
  Sender: FDA-Public Use
  Company Number: B0958867A

PATIENT
  Age: 50 Year
  Sex: Male

DRUGS (6)
  1. METHADONE HYDROCHLORIDE [Suspect]
     Route: 048
  2. CITALOPRAM [Suspect]
     Route: 048
  3. DILTIAZEM HYDROCHLORIDE [Suspect]
     Route: 048
  4. NORTRIPTYLINE [Suspect]
     Route: 048
  5. BUPROPION HYDROCHLORIDE [Suspect]
     Route: 048
  6. ETHANOL [Suspect]
     Route: 048

REACTIONS (2)
  - Exposure via ingestion [None]
  - Intentional drug misuse [None]
